FAERS Safety Report 15304460 (Version 1)
Quarter: 2018Q3

REPORT INFORMATION
  Report Type: Report from Study
  Country: US (occurrence: US)
  Receive Date: 20180821
  Receipt Date: 20180821
  Transmission Date: 20181010
  Serious: No
  Sender: FDA-Public Use
  Company Number: US-AMGEN INC.-USASP2018111878

PATIENT
  Age: 41 Year
  Sex: Female

DRUGS (1)
  1. AIMOVIG [Suspect]
     Active Substance: ERENUMAB-AOOE
     Indication: MIGRAINE
     Dosage: UNK
     Route: 065
     Dates: start: 20180808

REACTIONS (9)
  - Mobility decreased [Not Recovered/Not Resolved]
  - Fall [Unknown]
  - Anxiety [Unknown]
  - Migraine [Not Recovered/Not Resolved]
  - Psychogenic seizure [Unknown]
  - Hallucination [Recovered/Resolved]
  - Muscular weakness [Recovering/Resolving]
  - Abnormal dreams [Not Recovered/Not Resolved]
  - Tremor [Unknown]

NARRATIVE: CASE EVENT DATE: 201808
